FAERS Safety Report 5672808-6 (Version None)
Quarter: 2008Q1

REPORT INFORMATION
  Report Type: 
  Country: None (occurrence: None)
  Receive Date: 20080319
  Receipt Date: 20070301
  Transmission Date: 20080703
  Serious: No
  Sender: FDA-Public Use
  Company Number: US-KINGPHARMUSA00001-K200700240

PATIENT
  Age: 70 Year
  Sex: Female

DRUGS (4)
  1. ALTACE [Suspect]
     Indication: HYPERTENSION
     Dosage: 20 MG, QD
     Route: 048
     Dates: start: 20040101
  2. MAXIDEX    /00016001/ [Concomitant]
     Dates: end: 20070228
  3. PREMARIN [Concomitant]
     Dates: start: 19720101
  4. THYROID TAB [Concomitant]

REACTIONS (2)
  - ERYTHEMA [None]
  - SKIN DISCOLOURATION [None]
